FAERS Safety Report 5259847-4 (Version None)
Quarter: 2007Q1

REPORT INFORMATION
  Report Type: 
  Country: None (occurrence: None)
  Receive Date: 20070309
  Receipt Date: 20070227
  Transmission Date: 20070707
  Serious: Yes (Hospitalization)
  Sender: FDA-Public Use
  Company Number: US-AVENTIS-200711019EU

PATIENT
  Age: 72 Year
  Sex: Female

DRUGS (3)
  1. LASIX [Suspect]
  2. CODE UNBROKEN [Suspect]
     Indication: CARDIAC FAILURE
     Dosage: DOSE: 2 DOSAGE FORM
     Route: 048
     Dates: start: 20030519, end: 20030929
  3. BETA BLOCKING AGENTS [Suspect]

REACTIONS (3)
  - BRADYCARDIA [None]
  - DEHYDRATION [None]
  - SYNCOPE [None]
